FAERS Safety Report 6107492-0 (Version None)
Quarter: 2009Q1

REPORT INFORMATION
  Report Type: 
  Country: None (occurrence: None)
  Receive Date: 20090309
  Receipt Date: 20090225
  Transmission Date: 20090719
  Serious: Yes (Other)
  Sender: FDA-Public Use
  Company Number: US-PFIZER INC-2008097098

PATIENT
  Sex: Female
  Weight: 269 kg

DRUGS (5)
  1. SELZENTRY [Suspect]
     Indication: HIV INFECTION
     Dosage: 600 MG, 2X/DAY
     Route: 048
     Dates: start: 20080302
  2. LAMIVUDINE AND ZIDOVUDINE [Suspect]
     Indication: HIV INFECTION
     Dosage: FREQUENCY: Q12H,
     Dates: start: 20080205
  3. GALENIC /LOPINAVIR/RITONAVIR/ [Suspect]
     Indication: HIV INFECTION
     Dosage: 200/800
     Dates: start: 20080205
  4. VITAMIN TAB [Concomitant]
     Dates: start: 20080701
  5. RANITIDINE [Concomitant]
     Dates: start: 20080827

REACTIONS (2)
  - ABORTION SPONTANEOUS [None]
  - GENITAL HERPES [None]
